FAERS Safety Report 8769634 (Version 4)
Quarter: 2014Q2

REPORT INFORMATION
  Report Type: Spontaneous
  Country: BR (occurrence: BR)
  Receive Date: 20120905
  Receipt Date: 20140421
  Transmission Date: 20141212
  Serious: Yes (Life-Threatening, Hospitalization, Other)
  Sender: FDA-Public Use
  Company Number: BR-JNJFOC-20120901229

PATIENT
  Age: 26 Day
  Sex: Male
  Weight: 3.12 kg

DRUGS (3)
  1. PARACETAMOL [Suspect]
     Route: 048
  2. PARACETAMOL [Suspect]
     Indication: PYREXIA
     Dosage: TOTAL DOSE OF 180 MG/KG
     Route: 048
  3. PARACETAMOL [Suspect]
     Indication: TOOTHACHE
     Route: 065

REACTIONS (6)
  - Drug-induced liver injury [Recovered/Resolved]
  - Acute hepatic failure [Recovered/Resolved]
  - Metabolic acidosis [Recovered/Resolved]
  - Gastrointestinal haemorrhage [Recovered/Resolved]
  - Staphylococcal infection [Recovered/Resolved]
  - Exposure during breast feeding [Unknown]
